FAERS Safety Report 4550095-X (Version None)
Quarter: 2005Q1

REPORT INFORMATION
  Report Type: 
  Country: None (occurrence: None)
  Receive Date: 20050110
  Receipt Date: 20050103
  Transmission Date: 20050727
  Serious: Yes (Other)
  Sender: FDA-Public Use
  Company Number: 2004UW23940

PATIENT
  Age: 9 Year
  Sex: Female
  Weight: 13.607 kg

DRUGS (2)
  1. SEROQUEL [Suspect]
     Indication: AGITATION
     Dosage: 150 MG QD PO
     Route: 048
     Dates: start: 20040901
  2. LEXAPRO [Concomitant]

REACTIONS (2)
  - ANXIETY [None]
  - CONDITION AGGRAVATED [None]
